FAERS Safety Report 7926940 (Version 3)
Quarter: 2013Q1

REPORT INFORMATION
  Report Type: Spontaneous
  Country: US (occurrence: US)
  Receive Date: 20110502
  Receipt Date: 20130110
  Transmission Date: 20140127
  Serious: No
  Sender: FDA-Public Use
  Company Number: US-ASTRAZENECA-2011SE01977

PATIENT
  Age: 81 Year
  Sex: Female

DRUGS (1)
  1. NEXIUM [Suspect]
     Route: 048

REACTIONS (8)
  - Ear discomfort [Unknown]
  - Bronchitis [Unknown]
  - Hearing impaired [Unknown]
  - Sinusitis [Unknown]
  - Nasopharyngitis [Unknown]
  - Ulcer [Unknown]
  - Malaise [Unknown]
  - Headache [Unknown]
